FAERS Safety Report 22304002 (Version 1)
Quarter: 2023Q2

REPORT INFORMATION
  Report Type: Spontaneous
  Country: US (occurrence: None)
  Receive Date: 20230509
  Receipt Date: 20230509
  Transmission Date: 20230721
  Serious: No
  Sender: FDA-Public Use
  Company Number: None

PATIENT
  Sex: Female

DRUGS (1)
  1. HUMIRA [Suspect]
     Active Substance: ADALIMUMAB
     Dosage: OTHER FREQUENCY : UNKNOWN;?
     Route: 058

REACTIONS (4)
  - Hypobarism [None]
  - Chest pain [None]
  - Hypertension [None]
  - Heart rate increased [None]
